FAERS Safety Report 9988863 (Version 1)
Quarter: 2014Q1

REPORT INFORMATION
  Report Type: Spontaneous
  Country: US (occurrence: US)
  Receive Date: 20140310
  Receipt Date: 20140310
  Transmission Date: 20141002
  Serious: Yes (Other)
  Sender: FDA-Public Use
  Company Number: US-BAYER-2014-035496

PATIENT
  Age: 68 Year
  Sex: Male

DRUGS (3)
  1. XOFIGO [Suspect]
     Indication: PROSTATE CANCER
     Dosage: UNK
     Dates: start: 201401
  2. XOFIGO [Suspect]
     Indication: METASTASES TO BONE
  3. COUMADIN [Concomitant]

REACTIONS (1)
  - Haematochezia [Not Recovered/Not Resolved]
